FAERS Safety Report 12337008 (Version 1)
Quarter: 2016Q2

REPORT INFORMATION
  Report Type: Spontaneous
  Country: US (occurrence: None)
  Receive Date: 20160504
  Receipt Date: 20160504
  Transmission Date: 20160815
  Serious: Yes (Life-Threatening, Hospitalization, Disabling)
  Sender: FDA-Public Use
  Company Number: None

PATIENT
  Sex: Female

DRUGS (16)
  1. ZYPREXA [Suspect]
     Active Substance: OLANZAPINE
     Indication: DEPRESSION
     Dosage: 2 PUFF
     Route: 055
     Dates: start: 1980, end: 2016
  2. PRISLOC [Concomitant]
  3. ZYPREXA [Suspect]
     Active Substance: OLANZAPINE
     Indication: SCHIZOAFFECTIVE DISORDER
     Dosage: 2 PUFF
     Route: 055
     Dates: start: 1980, end: 2016
  4. VENTOLIN [Concomitant]
     Active Substance: ALBUTEROL SULFATE
  5. ZYPREXA [Suspect]
     Active Substance: OLANZAPINE
     Indication: SCHIZOPHRENIA
     Dosage: 2 PUFF
     Route: 055
     Dates: start: 1980, end: 2016
  6. LI [Concomitant]
  7. ZYPREXA [Suspect]
     Active Substance: OLANZAPINE
     Indication: ASTHMA
     Dosage: 2 PUFF
     Route: 055
     Dates: start: 1980, end: 2016
  8. MEDIFORMER [Concomitant]
  9. LISPRO [Concomitant]
     Active Substance: INSULIN LISPRO
  10. EFFECOX [Concomitant]
  11. TRIPLEPTA [Concomitant]
  12. SYMBOCORIT [Concomitant]
  13. ALBUTEL INHALER [Concomitant]
  14. PROAIR HFA [Concomitant]
     Active Substance: ALBUTEROL SULFATE
  15. LATUDA [Concomitant]
     Active Substance: LURASIDONE HYDROCHLORIDE
  16. ALBUTEL BREATHE MACHINE [Concomitant]

REACTIONS (2)
  - Hypertension [None]
  - Diabetes mellitus [None]

NARRATIVE: CASE EVENT DATE: 1998
